FAERS Safety Report 16240407 (Version 1)
Quarter: 2019Q2

REPORT INFORMATION
  Report Type: Spontaneous
  Country: US (occurrence: US)
  Receive Date: 20190425
  Receipt Date: 20190425
  Transmission Date: 20190711
  Serious: No
  Sender: FDA-Public Use
  Company Number: US-TEVA-2019-US-1038621

PATIENT
  Age: 5 Year
  Sex: Male

DRUGS (2)
  1. ASPIRIN. [Concomitant]
     Active Substance: ASPIRIN
     Indication: PROPHYLAXIS
     Route: 065
  2. VALPROIC ACID. [Suspect]
     Active Substance: VALPROIC ACID
     Indication: PROPHYLAXIS
     Route: 065

REACTIONS (1)
  - Behaviour disorder [Unknown]
